FAERS Safety Report 23629032 (Version 1)
Quarter: 2024Q1

REPORT INFORMATION
  Report Type: Spontaneous
  Country: CA (occurrence: CA)
  Receive Date: 20240313
  Receipt Date: 20240313
  Transmission Date: 20240409
  Serious: Yes (Other)
  Sender: FDA-Public Use
  Company Number: CA-AstraZeneca-2024A056346

PATIENT
  Sex: Female
  Weight: 77 kg

DRUGS (1)
  1. TRASTUZUMAB DERUXTECAN [Suspect]
     Active Substance: TRASTUZUMAB DERUXTECAN
     Indication: HER2 negative breast cancer
     Dosage: 331.3 MG, 1 EVERY 3 WEEKS
     Route: 042

REACTIONS (2)
  - Deep vein thrombosis [Unknown]
  - Pain in extremity [Unknown]
